FAERS Safety Report 6746550-4 (Version None)
Quarter: 2010Q2

REPORT INFORMATION
  Report Type: 
  Country: None (occurrence: None)
  Receive Date: 20100528
  Receipt Date: 20100305
  Transmission Date: 20101027
  Serious: No
  Sender: FDA-Public Use
  Company Number: US-ASTRAZENECA-2010SE00424

PATIENT
  Age: 58 Year
  Sex: Male

DRUGS (3)
  1. PRILOSEC OTC [Suspect]
     Indication: GASTROOESOPHAGEAL REFLUX DISEASE
     Route: 048
     Dates: end: 20091228
  2. CRESTOR [Concomitant]
     Route: 048
  3. CENTRUM SILVER [Concomitant]
     Dosage: UNK DOSE, 1 /DAY

REACTIONS (2)
  - INCORRECT DRUG ADMINISTRATION DURATION [None]
  - NAUSEA [None]
